FAERS Safety Report 7690737 (Version 2)
Quarter: 2013Q3

REPORT INFORMATION
  Report Type: Spontaneous
  Country: US (occurrence: IN)
  Receive Date: 20101203
  Receipt Date: 20130906
  Transmission Date: 20140515
  Serious: Yes (Hospitalization)
  Sender: FDA-Public Use
  Company Number: US-RANBAXY-2010US-39821

PATIENT
  Age: 23 Year
  Sex: Male

DRUGS (1)
  1. FLUCONAZOLE [Suspect]
     Indication: TINEA VERSICOLOUR
     Dosage: 400 MG, SINGLE
     Route: 048

REACTIONS (1)
  - Stevens-Johnson syndrome [Unknown]
